FAERS Safety Report 9270808 (Version 2)
Quarter: 2013Q2

REPORT INFORMATION
  Report Type: Spontaneous
  Country: US (occurrence: US)
  Receive Date: 20130503
  Receipt Date: 20130507
  Transmission Date: 20140414
  Serious: No
  Sender: FDA-Public Use
  Company Number: US-009507513-1305USA000749

PATIENT
  Sex: 0
  Weight: 72.56 kg

DRUGS (2)
  1. NEXPLANON [Suspect]
     Dosage: UNK
     Dates: start: 20130430, end: 20130430
  2. NEXPLANON [Suspect]
     Dosage: UNK
     Route: 059
     Dates: start: 20130430

REACTIONS (3)
  - Device expulsion [Unknown]
  - Device deployment issue [Unknown]
  - No adverse event [Unknown]
